FAERS Safety Report 5624523-2 (Version None)
Quarter: 2008Q1

REPORT INFORMATION
  Report Type: 
  Country: None (occurrence: None)
  Receive Date: 20080213
  Receipt Date: 20080204
  Transmission Date: 20080703
  Serious: Yes (Disabling)
  Sender: FDA-Public Use
  Company Number: JP-PURDUE-MAG_2008_0000642

PATIENT
  Age: 43 Year
  Sex: Female

DRUGS (8)
  1. OXYCODONE HYDROCHLORIDE [Suspect]
     Indication: CANCER PAIN
     Dosage: 2.5 MG, QID
     Route: 048
     Dates: start: 20071206, end: 20071224
  2. FERROMIA [Concomitant]
     Indication: CERVIX CARCINOMA
     Dosage: 100 MG, DAILY
     Route: 048
  3. MUCOSTA [Concomitant]
     Indication: PROPHYLAXIS
     Dosage: 100 MG, DAILY
     Route: 048
  4. LOXONIN [Concomitant]
     Indication: CANCER PAIN
     Dosage: 180 MG, DAILY
     Route: 048
  5. NOVAMIN [Concomitant]
     Indication: PROPHYLAXIS
     Dosage: .15 MG, DAILY
     Route: 048
     Dates: start: 20001206
  6. ADOFEED [Concomitant]
     Indication: CANCER PAIN
     Dosage: UNK, TID
     Route: 065
  7. MAG-LAX [Concomitant]
     Indication: PROPHYLAXIS
     Dosage: 990 MG, DAILY
     Route: 048
  8. PRIMPERAN INJ [Concomitant]
     Indication: DRUG USE FOR UNKNOWN INDICATION
     Route: 048

REACTIONS (1)
  - RENAL FAILURE ACUTE [None]
